FAERS Safety Report 15329843 (Version 2)
Quarter: 2018Q4

REPORT INFORMATION
  Report Type: Spontaneous
  Country: US (occurrence: US)
  Receive Date: 20180829
  Receipt Date: 20181024
  Transmission Date: 20190204
  Serious: Yes (Other)
  Sender: FDA-Public Use
  Company Number: US-PFIZER INC-2018341704

PATIENT
  Age: 63 Year
  Sex: Male

DRUGS (7)
  1. MS CONTIN [Concomitant]
     Active Substance: MORPHINE SULFATE
     Dosage: 30 MG, 2X/DAY
  2. MS CONTIN [Concomitant]
     Active Substance: MORPHINE SULFATE
     Dosage: UNK, 1X/DAY
     Dates: start: 201605
  3. CYMBALTA [Concomitant]
     Active Substance: DULOXETINE HYDROCHLORIDE
     Dosage: UNK UNK, 2X/DAY
     Dates: start: 201603, end: 201804
  4. NEURONTIN [Suspect]
     Active Substance: GABAPENTIN
     Indication: NEURALGIA
     Dosage: UNK
     Dates: start: 201603, end: 20160608
  5. OXYCODONE [Concomitant]
     Active Substance: OXYCODONE
     Dosage: 1 MG, 3X/DAY
  6. OXYCODONE [Concomitant]
     Active Substance: OXYCODONE
     Dosage: 20 MG, AS NEEDED (4X DAY PRN AS NEEDED)
     Dates: start: 201603
  7. DESVENLAFAXINE. [Concomitant]
     Active Substance: DESVENLAFAXINE
     Dosage: 100 MG, 3X/DAY
     Dates: start: 201804

REACTIONS (4)
  - Hallucination [Unknown]
  - Insomnia [Unknown]
  - Suicidal ideation [Unknown]
  - Drug ineffective [Unknown]
